FAERS Safety Report 9032259 (Version 2)
Quarter: 2013Q1

REPORT INFORMATION
  Report Type: Spontaneous
  Country: US (occurrence: US)
  Receive Date: 20130122
  Receipt Date: 20130214
  Transmission Date: 20140127
  Serious: No
  Sender: FDA-Public Use
  Company Number: US-PFIZER INC-2013022957

PATIENT
  Sex: Female
  Weight: 65.76 kg

DRUGS (5)
  1. LIPITOR [Suspect]
     Indication: BLOOD CHOLESTEROL INCREASED
     Dosage: UNK
     Route: 048
  2. LIPITOR [Suspect]
     Dosage: UNK
     Route: 048
     Dates: end: 201212
  3. ATORVASTATIN CALCIUM [Suspect]
     Indication: BLOOD CHOLESTEROL INCREASED
     Dosage: UNK
  4. AVAPRO [Suspect]
     Indication: HYPERTENSION
     Dosage: 150 MG, 2X/DAY
  5. ASPIRIN [Concomitant]
     Dosage: 81 MG, 2X/WEEK

REACTIONS (6)
  - Drug dose omission [Unknown]
  - Headache [Recovered/Resolved]
  - Myalgia [Unknown]
  - Malaise [Unknown]
  - Rash [Unknown]
  - Drug ineffective [Unknown]
